FAERS Safety Report 4346276-0 (Version None)
Quarter: 2004Q1

REPORT INFORMATION
  Report Type: 
  Country: None (occurrence: None)
  Receive Date: 20040325
  Receipt Date: 20040220
  Transmission Date: 20041129
  Serious: No
  Sender: FDA-Public Use
  Company Number: USA030948123

PATIENT
  Age: 74 Year
  Sex: Female
  Weight: 74 kg

DRUGS (8)
  1. FORTEO [Suspect]
     Indication: BONE DISORDER
     Dosage: 20 UG/1 AT BEDTIME
     Dates: start: 20030903
  2. PLAQUENIL [Concomitant]
  3. MAXZIDE [Concomitant]
  4. PRILOSEC [Concomitant]
  5. CALCIUM [Concomitant]
  6. VITAMIN CAP [Concomitant]
  7. BEXTRA [Concomitant]
  8. CALCIUM WITH VITAMIN D [Concomitant]

REACTIONS (5)
  - HEADACHE [None]
  - INJECTION SITE HAEMORRHAGE [None]
  - INJECTION SITE PAIN [None]
  - NAUSEA [None]
  - OEDEMA PERIPHERAL [None]
